FAERS Safety Report 9920938 (Version 1)
Quarter: 2014Q1

REPORT INFORMATION
  Report Type: Spontaneous
  Country: US (occurrence: US)
  Receive Date: 20140225
  Receipt Date: 20140225
  Transmission Date: 20141002
  Serious: Yes (Other)
  Sender: FDA-Public Use
  Company Number: US-BIOGENIDEC-2014BI017638

PATIENT
  Sex: Male

DRUGS (10)
  1. AVONEX [Suspect]
     Indication: MULTIPLE SCLEROSIS
     Route: 030
     Dates: start: 20120410, end: 20130506
  2. AVONEX [Suspect]
     Indication: MULTIPLE SCLEROSIS
     Route: 030
     Dates: start: 20130507
  3. PLAVIX [Concomitant]
  4. ASA [Concomitant]
  5. TOPROL XL [Concomitant]
  6. CARDIZEM [Concomitant]
  7. HCTZ [Concomitant]
  8. LIPITOR [Concomitant]
  9. ADVAIR [Concomitant]
  10. VENLAFAXINE [Concomitant]

REACTIONS (1)
  - Coronary artery bypass [Recovered/Resolved]
